FAERS Safety Report 5087575-7 (Version None)
Quarter: 2006Q3

REPORT INFORMATION
  Report Type: 
  Country: None (occurrence: None)
  Receive Date: 20060822
  Receipt Date: 20060822
  Transmission Date: 20061208
  Serious: Yes (Life-Threatening)
  Sender: FDA-Public Use
  Company Number: None

PATIENT
  Age: 51 Year
  Sex: Male

DRUGS (6)
  1. LISINOPRIL [Suspect]
     Indication: HYPERTENSION
     Dosage: 10MG   ONCE   PO
     Route: 048
     Dates: start: 20060419, end: 20060419
  2. METOPROLOL TARTRATE [Concomitant]
  3. PANTOPRAZOLE SODIUM [Concomitant]
  4. FOLIC ACID [Concomitant]
  5. THIAMINE [Concomitant]
  6. MULTI-VITAMIN [Concomitant]

REACTIONS (9)
  - AGITATION [None]
  - ALCOHOL WITHDRAWAL SYNDROME [None]
  - ANAPHYLACTIC REACTION [None]
  - ANGIONEUROTIC OEDEMA [None]
  - DYSPHAGIA [None]
  - LYMPHADENOPATHY [None]
  - PALATAL OEDEMA [None]
  - PHARYNGEAL OEDEMA [None]
  - PNEUMONIA [None]
